FAERS Safety Report 25353055 (Version 1)
Quarter: 2025Q2

REPORT INFORMATION
  Report Type: Report from Study
  Country: US (occurrence: US)
  Receive Date: 20250523
  Receipt Date: 20250523
  Transmission Date: 20250717
  Serious: Yes (Other)
  Sender: UCB
  Company Number: US-UCBSA-2025030348

PATIENT
  Sex: Male
  Weight: 106.59 kg

DRUGS (12)
  1. ZILUCOPLAN [Suspect]
     Active Substance: ZILUCOPLAN
     Indication: Myasthenia gravis
     Dosage: 32.4 MILLIGRAM, ONCE DAILY (QD)
     Route: 058
     Dates: start: 20250503
  2. CANDESARTAN [Concomitant]
     Active Substance: CANDESARTAN
     Indication: Product used for unknown indication
  3. ELIQUIS [Concomitant]
     Active Substance: APIXABAN
     Indication: Product used for unknown indication
  4. FIORICET [Concomitant]
     Active Substance: ACETAMINOPHEN\BUTALBITAL\CAFFEINE
     Indication: Product used for unknown indication
  5. MESTINON [Concomitant]
     Active Substance: PYRIDOSTIGMINE BROMIDE
     Indication: Product used for unknown indication
  6. PANTOPRAZOLE [Concomitant]
     Active Substance: PANTOPRAZOLE
     Indication: Product used for unknown indication
  7. PREDNISONE [Concomitant]
     Active Substance: PREDNISONE
     Indication: Product used for unknown indication
  8. REPATHA [Concomitant]
     Active Substance: EVOLOCUMAB
     Indication: Product used for unknown indication
  9. RYSTIGGO [ROZANOLIXIZUMAB] [Concomitant]
     Indication: Product used for unknown indication
  10. TRUXIMA [Concomitant]
     Active Substance: RITUXIMAB-ABBS
     Indication: Product used for unknown indication
  11. XANAX [Concomitant]
     Active Substance: ALPRAZOLAM
     Indication: Product used for unknown indication
  12. TESTOSTERONE [Concomitant]
     Active Substance: TESTOSTERONE
     Indication: Product used for unknown indication

REACTIONS (2)
  - Pancreatic enzymes increased [Unknown]
  - Eosinophil count increased [Unknown]
